FAERS Safety Report 9376809 (Version 1)
Quarter: 2013Q2

REPORT INFORMATION
  Report Type: Spontaneous
  Country: US (occurrence: None)
  Receive Date: 20130628
  Receipt Date: 20130628
  Transmission Date: 20140414
  Serious: Yes (Hospitalization)
  Sender: FDA-Public Use
  Company Number: None

PATIENT
  Age: 81 Year
  Sex: Male
  Weight: 101.8 kg

DRUGS (2)
  1. PREGABALIN [Suspect]
     Route: 048
     Dates: start: 20120403, end: 20130620
  2. LISINOPRIL 10 MG [Suspect]
     Route: 048
     Dates: start: 19951130

REACTIONS (3)
  - Angioedema [None]
  - Hepatic enzyme increased [None]
  - Jaundice [None]
